FAERS Safety Report 8999804 (Version 1)
Quarter: 2013Q1

REPORT INFORMATION
  Report Type: Spontaneous
  Country: US (occurrence: US)
  Receive Date: 20130102
  Receipt Date: 20130102
  Transmission Date: 20140127
  Serious: No
  Sender: FDA-Public Use
  Company Number: US-009507513-1212USA009876

PATIENT
  Age: 18 None
  Sex: Female
  Weight: 61.22 kg

DRUGS (1)
  1. IMPLANON [Suspect]
     Indication: CONTRACEPTION
     Dosage: 3 YEARS IMPLANT
     Route: 059
     Dates: start: 20120322

REACTIONS (6)
  - Unintended pregnancy [Unknown]
  - Pain in extremity [Not Recovered/Not Resolved]
  - Breast tenderness [Not Recovered/Not Resolved]
  - Implant site bruising [Not Recovered/Not Resolved]
  - Chest pain [Not Recovered/Not Resolved]
  - Breast discomfort [Not Recovered/Not Resolved]
